FAERS Safety Report 5748476-1 (Version None)
Quarter: 2008Q2

REPORT INFORMATION
  Report Type: 
  Country: None (occurrence: None)
  Receive Date: 20080523
  Receipt Date: 20080513
  Transmission Date: 20081010
  Serious: Yes (Other)
  Sender: FDA-Public Use
  Company Number: US-PFIZER INC-2008041516

PATIENT
  Sex: Male
  Weight: 61.363 kg

DRUGS (3)
  1. CHANTIX [Suspect]
     Indication: SMOKING CESSATION THERAPY
     Route: 048
  2. AMINO ACIDS [Concomitant]
  3. VITAMIN CAP [Concomitant]

REACTIONS (3)
  - BLOOD URINE PRESENT [None]
  - NAUSEA [None]
  - RASH [None]
